FAERS Safety Report 6268095-0 (Version None)
Quarter: 2009Q3

REPORT INFORMATION
  Report Type: 
  Country: None (occurrence: None)
  Receive Date: 20090715
  Receipt Date: 20070315
  Transmission Date: 20100115
  Serious: Yes (Hospitalization)
  Sender: FDA-Public Use
  Company Number: US-ASTRAZENECA-2006UW08272

PATIENT
  Age: 36 Year
  Sex: Female
  Weight: 88 kg

DRUGS (34)
  1. SEROQUEL [Suspect]
     Indication: BIPOLAR DISORDER
     Route: 048
     Dates: start: 20040101
  2. SEROQUEL [Suspect]
     Indication: ANXIETY
     Route: 048
     Dates: start: 20040101
  3. SEROQUEL [Suspect]
     Indication: DEPRESSION
     Route: 048
     Dates: start: 20040101
  4. SEROQUEL [Suspect]
     Route: 048
     Dates: start: 20040101
  5. SEROQUEL [Suspect]
     Route: 048
     Dates: start: 20040101
  6. SEROQUEL [Suspect]
     Route: 048
     Dates: start: 20040101
  7. SEROQUEL [Suspect]
     Route: 048
     Dates: start: 20040223
  8. SEROQUEL [Suspect]
     Route: 048
     Dates: start: 20040223
  9. SEROQUEL [Suspect]
     Route: 048
     Dates: start: 20040223
  10. ABILIFY [Concomitant]
  11. ZYPREXA [Concomitant]
  12. CEFOTAN [Concomitant]
  13. CLARITIN [Concomitant]
  14. LANTUS [Concomitant]
  15. NOVOLOG [Concomitant]
  16. TOPAMAX [Concomitant]
  17. WELLBUTRIN [Concomitant]
  18. IBUPROFEN [Concomitant]
  19. PERCOCET [Concomitant]
  20. AMARYL [Concomitant]
  21. GLUCOPHAGE [Concomitant]
  22. BYETTA [Concomitant]
  23. VALTREX [Concomitant]
  24. LORTAB [Concomitant]
  25. ACTOS [Concomitant]
  26. DIFLUCAN [Concomitant]
  27. ENDOCET [Concomitant]
  28. AVELOX [Concomitant]
  29. TRILEPTAL [Concomitant]
  30. NASONEX [Concomitant]
  31. SINGULAIR [Concomitant]
  32. SKELAXIN [Concomitant]
  33. DEPO-PROVERA [Concomitant]
  34. ALBUTEROL [Concomitant]

REACTIONS (4)
  - DIABETES MELLITUS [None]
  - DIABETIC NEUROPATHY [None]
  - SKIN LESION EXCISION [None]
  - TYPE 2 DIABETES MELLITUS [None]
